FAERS Safety Report 5301263-0 (Version None)
Quarter: 2007Q2

REPORT INFORMATION
  Report Type: 
  Country: None (occurrence: None)
  Receive Date: 20070418
  Receipt Date: 20070411
  Transmission Date: 20071010
  Serious: Yes (Hospitalization, Other)
  Sender: FDA-Public Use
  Company Number: JP-PFIZER INC-2007029467

PATIENT
  Age: 84 Year
  Sex: Female

DRUGS (1)
  1. HALCION [Suspect]
     Indication: SLEEP DISORDER
     Route: 048

REACTIONS (3)
  - ASPIRATION [None]
  - FRACTURE [None]
  - SOMNOLENCE [None]
